FAERS Safety Report 12695843 (Version 2)
Quarter: 2016Q4

REPORT INFORMATION
  Report Type: Spontaneous
  Country: US (occurrence: US)
  Receive Date: 20160829
  Receipt Date: 20161027
  Transmission Date: 20170207
  Serious: Yes (Other)
  Sender: FDA-Public Use
  Company Number: US-ALLERGAN-1666791US

PATIENT
  Sex: Female

DRUGS (1)
  1. OXYTROL [Suspect]
     Active Substance: OXYBUTYNIN
     Indication: PRODUCT USED FOR UNKNOWN INDICATION
     Route: 062

REACTIONS (11)
  - Foreign body sensation in eyes [Recovered/Resolved]
  - Eye irritation [Recovered/Resolved]
  - Feeling abnormal [Recovering/Resolving]
  - Dizziness [Recovered/Resolved]
  - Photophobia [Recovering/Resolving]
  - Dry eye [Recovered/Resolved]
  - Dry mouth [Recovering/Resolving]
  - Cataract [Recovering/Resolving]
  - Balance disorder [Recovering/Resolving]
  - Urine abnormality [Recovering/Resolving]
  - Eye discharge [Recovering/Resolving]
